FAERS Safety Report 5026976-X (Version None)
Quarter: 2006Q2

REPORT INFORMATION
  Report Type: 
  Country: None (occurrence: None)
  Receive Date: 20060609
  Receipt Date: 20060529
  Transmission Date: 20061013
  Serious: Yes (Other)
  Sender: FDA-Public Use
  Company Number: 2006069623

PATIENT

DRUGS (5)
  1. UNASYN [Suspect]
     Indication: PNEUMONIA ASPIRATION
     Dosage: 13.5 GRAM (4.5 GRAM, TID), INTRAVENOUS
     Route: 042
     Dates: start: 20060517, end: 20060501
  2. UNASYN [Suspect]
     Indication: PNEUMONIA ASPIRATION
     Dosage: 13.5 GRAM (4.5 GRAM, TID), INTRAVENOUS
     Route: 042
     Dates: start: 20060425, end: 20060508
  3. DEPAKENE [Suspect]
     Indication: ILL-DEFINED DISORDER
     Dosage: 600 MG, ORAL
     Route: 048
  4. PHENOBAL (PHENOBARBITAL) [Suspect]
     Indication: ILL-DEFINED DISORDER
     Dosage: 30 MG, ORAL
     Route: 048
  5. ZONISAMIDE [Suspect]
     Indication: ILL-DEFINED DISORDER
     Dosage: 230 MG, ORAL
     Route: 048

REACTIONS (4)
  - ANTICONVULSANT DRUG LEVEL DECREASED [None]
  - CONVULSION [None]
  - DISEASE RECURRENCE [None]
  - PNEUMONIA [None]
